FAERS Safety Report 16407832 (Version 1)
Quarter: 2019Q2

REPORT INFORMATION
  Report Type: Report from Study
  Country: IT (occurrence: IT)
  Receive Date: 20190610
  Receipt Date: 20190610
  Transmission Date: 20190711
  Serious: Yes (Death, Other)
  Sender: FDA-Public Use
  Company Number: IT-BRISTOL-MYERS SQUIBB COMPANY-BMS-2019-053882

PATIENT
  Age: 64 Year
  Sex: Male
  Weight: 90 kg

DRUGS (1)
  1. NIVOLUMAB [Suspect]
     Active Substance: NIVOLUMAB
     Indication: LUNG ADENOCARCINOMA
     Dosage: 240 MILLIGRAM, CYCLICAL
     Route: 042
     Dates: start: 20171229, end: 20190129

REACTIONS (5)
  - Pneumonitis [Fatal]
  - Asthenia [Fatal]
  - Pulmonary fibrosis [Fatal]
  - Dyspnoea [Fatal]
  - Respiratory failure [Fatal]

NARRATIVE: CASE EVENT DATE: 20190212
